FAERS Safety Report 6760498-0 (Version None)
Quarter: 2010Q2

REPORT INFORMATION
  Report Type: 
  Country: None (occurrence: None)
  Receive Date: 20100604
  Receipt Date: 20090504
  Transmission Date: 20101027
  Serious: Yes (Other)
  Sender: FDA-Public Use
  Company Number: 2008BH013768

PATIENT
  Age: 7 Year
  Sex: Male

DRUGS (2)
  1. ADVATE [Suspect]
     Indication: FACTOR VIII DEFICIENCY
     Dosage: ;EVERY 2 DY;IV : ;EVERY DAY;IV
     Route: 042
     Dates: start: 20051201, end: 20051201
  2. ANTIHEMOPHILIC FACTOR (HUMAN) [Concomitant]

REACTIONS (3)
  - DYSPNOEA [None]
  - RASH [None]
  - URTICARIA [None]
